FAERS Safety Report 7790449-1 (Version None)
Quarter: 2011Q3

REPORT INFORMATION
  Report Type: 
  Country: None (occurrence: None)
  Receive Date: 20110930
  Receipt Date: 20110923
  Transmission Date: 20111222
  Serious: Yes (Hospitalization, Other)
  Sender: FDA-Public Use
  Company Number: US-UCBSA-042074

PATIENT
  Sex: Male
  Weight: 92.5 kg

DRUGS (1)
  1. METADATE CD [Suspect]
     Indication: ATTENTION DEFICIT/HYPERACTIVITY DISORDER
     Route: 048
     Dates: start: 20110601, end: 20110824

REACTIONS (8)
  - SUICIDAL IDEATION [None]
  - DELUSION [None]
  - HEAD INJURY [None]
  - INSOMNIA [None]
  - CONTUSION [None]
  - ENERGY INCREASED [None]
  - MANIA [None]
  - EUPHORIC MOOD [None]
